FAERS Safety Report 6360875-6 (Version None)
Quarter: 2009Q3

REPORT INFORMATION
  Report Type: 
  Country: None (occurrence: None)
  Receive Date: 20090915
  Receipt Date: 20090915
  Transmission Date: 20100115
  Serious: Yes (Hospitalization)
  Sender: FDA-Public Use
  Company Number: None

PATIENT
  Age: 61 Year
  Sex: Male
  Weight: 82 kg

DRUGS (6)
  1. CETUXIMAB [Suspect]
     Dosage: 525 MG, WEEKLY, IV
     Route: 042
     Dates: start: 20090824
  2. CETUXIMAB [Suspect]
     Dosage: 525 MG, WEEKLY, IV
     Route: 042
     Dates: start: 20090831
  3. CETUXIMAB [Suspect]
     Dosage: 525 MG, WEEKLY, IV
     Route: 042
     Dates: start: 20090908
  4. CETUXIMAB [Suspect]
     Dosage: 525 MG, WEEKLY, IV
     Route: 042
     Dates: start: 20090914
  5. CISPLATIN [Suspect]
     Dosage: 210 MG, WEEKLY, IV
     Route: 042
     Dates: start: 20090824
  6. CISPLATIN [Suspect]
     Dosage: 210 MG, WEEKLY, IV
     Route: 042
     Dates: start: 20090914

REACTIONS (2)
  - DECREASED APPETITE [None]
  - WEIGHT DECREASED [None]
